FAERS Safety Report 10845218 (Version 1)
Quarter: 2015Q1

REPORT INFORMATION
  Report Type: Spontaneous
  Country: US (occurrence: US)
  Receive Date: 20150220
  Receipt Date: 20150220
  Transmission Date: 20150721
  Serious: No
  Sender: FDA-Public Use
  Company Number: US-ABBVIE-14P-163-1297696-00

PATIENT

DRUGS (1)
  1. HUMIRA [Suspect]
     Active Substance: ADALIMUMAB
     Indication: PRODUCT USED FOR UNKNOWN INDICATION
     Route: 065

REACTIONS (10)
  - Insomnia [Unknown]
  - Joint injury [Unknown]
  - Fall [Unknown]
  - Face injury [Unknown]
  - Hiatus hernia [Unknown]
  - Nausea [Not Recovered/Not Resolved]
  - Haemorrhoids [Unknown]
  - Pain [Unknown]
  - Diarrhoea [Unknown]
  - Foot fracture [Unknown]

NARRATIVE: CASE EVENT DATE: 20141106
